FAERS Safety Report 6962539-4 (Version None)
Quarter: 2010Q3

REPORT INFORMATION
  Report Type: 
  Country: None (occurrence: None)
  Receive Date: 20100902
  Receipt Date: 20100902
  Transmission Date: 20110219
  Serious: Yes (Hospitalization, Other)
  Sender: FDA-Public Use
  Company Number: NZ-ROXANE LABORATORIES, INC.-2010-DE-04590GD

PATIENT
  Age: 88 Year
  Sex: Female

DRUGS (6)
  1. PREDNISONE [Suspect]
     Indication: RHEUMATOID ARTHRITIS
     Dosage: 2 MG
     Route: 048
  2. METHOTREXATE [Suspect]
     Indication: RHEUMATOID ARTHRITIS
     Dosage: 12.5 MG
  3. HYDROCORTISONE [Suspect]
     Indication: RHEUMATOID ARTHRITIS
     Dosage: 10 MG
  4. CORTICOSTEROID-CONTAINING MEDICATION [Suspect]
     Indication: RHEUMATOID ARTHRITIS
  5. AGENTS FOR CARDIAC DISEASE [Concomitant]
     Indication: CARDIAC DISORDER
  6. AGENTS FOR OSTEOPOROSIS [Concomitant]
     Indication: OSTEOPOROSIS

REACTIONS (5)
  - ARTHRITIS BACTERIAL [None]
  - DENTAL CARIES [None]
  - JOINT EFFUSION [None]
  - MICROCOCCUS INFECTION [None]
  - TOOTH ABSCESS [None]
